FAERS Safety Report 8416434-4 (Version None)
Quarter: 2012Q2

REPORT INFORMATION
  Report Type: 
  Country: None (occurrence: None)
  Receive Date: 20120606
  Receipt Date: 20120531
  Transmission Date: 20120825
  Serious: Yes (Hospitalization)
  Sender: FDA-Public Use
  Company Number: GR-ROCHE-1071052

PATIENT
  Age: 79 Year
  Sex: Female
  Weight: 55 kg

DRUGS (5)
  1. LEUCOVORIN CALCIUM [Suspect]
     Indication: COLORECTAL CANCER METASTATIC
     Route: 042
     Dates: start: 20110407, end: 20110408
  2. FLUOROURACIL [Suspect]
     Indication: COLORECTAL CANCER METASTATIC
     Route: 040
     Dates: start: 20110407, end: 20110408
  3. FLUOROURACIL [Suspect]
     Dosage: INFUSION PUMP
     Route: 042
     Dates: start: 20120407, end: 20120408
  4. OXALIPLATIN [Suspect]
     Indication: COLORECTAL CANCER METASTATIC
     Route: 042
     Dates: start: 20110407, end: 20110407
  5. AVASTIN [Suspect]
     Indication: COLORECTAL CANCER METASTATIC
     Route: 042
     Dates: start: 20110407, end: 20110407

REACTIONS (1)
  - FEBRILE NEUTROPENIA [None]
